FAERS Safety Report 18383611 (Version 1)
Quarter: 2020Q4

REPORT INFORMATION
  Report Type: Spontaneous
  Country: RO (occurrence: RO)
  Receive Date: 20201014
  Receipt Date: 20201014
  Transmission Date: 20210114
  Serious: Yes (Hospitalization)
  Sender: FDA-Public Use
  Company Number: RO-ABBVIE-20K-135-3606931-00

PATIENT
  Age: 22 Year
  Sex: Female

DRUGS (1)
  1. DEPAKINE CHRONO [Suspect]
     Active Substance: VALPROATE SODIUM
     Indication: PRODUCT USED FOR UNKNOWN INDICATION
     Route: 048

REACTIONS (5)
  - Pancreatitis necrotising [Recovered/Resolved]
  - Suicide attempt [Unknown]
  - Intentional overdose [Unknown]
  - Coma [Recovered/Resolved]
  - Prescription drug used without a prescription [Unknown]
